FAERS Safety Report 12337695 (Version 2)
Quarter: 2016Q3

REPORT INFORMATION
  Report Type: Spontaneous
  Country: US (occurrence: US)
  Receive Date: 20160505
  Receipt Date: 20160729
  Transmission Date: 20161109
  Serious: Yes (Hospitalization, Other)
  Sender: FDA-Public Use
  Company Number: US-TEVA-657204ACC

PATIENT
  Age: 23 Year
  Sex: Female
  Weight: 125.76 kg

DRUGS (1)
  1. PARAGARD T 380A [Suspect]
     Active Substance: COPPER
     Indication: CONTRACEPTION
     Dates: start: 20150506, end: 20160420

REACTIONS (2)
  - Device dislocation [Recovered/Resolved]
  - Pelvic pain [Unknown]

NARRATIVE: CASE EVENT DATE: 20160414
